FAERS Safety Report 8504164-X (Version None)
Quarter: 2012Q3

REPORT INFORMATION
  Report Type: 
  Country: None (occurrence: None)
  Receive Date: 20120711
  Receipt Date: 20120702
  Transmission Date: 20120928
  Serious: No
  Sender: FDA-Public Use
  Company Number: US-009507513-1207USA000402

PATIENT

DRUGS (4)
  1. GLUCOTROL [Concomitant]
  2. PRINIVIL [Concomitant]
  3. JANUVIA [Suspect]
     Indication: TYPE 2 DIABETES MELLITUS
     Dosage: UNK
     Route: 048
     Dates: start: 20120611
  4. PREVACID [Concomitant]

REACTIONS (1)
  - PAIN IN JAW [None]
